FAERS Safety Report 7280648-X (Version None)
Quarter: 2011Q1

REPORT INFORMATION
  Report Type: 
  Country: None (occurrence: None)
  Receive Date: 20110208
  Receipt Date: 20110203
  Transmission Date: 20110831
  Serious: Yes (Hospitalization)
  Sender: FDA-Public Use
  Company Number: A0788959A

PATIENT
  Age: 58 Year
  Sex: Male
  Weight: 70.5 kg

DRUGS (2)
  1. AVANDIA [Suspect]
     Dosage: 8MG TWICE PER DAY
     Route: 048
     Dates: start: 20040205, end: 20061001
  2. AVANDAMET [Suspect]
     Dosage: 8MG TWICE PER DAY
     Route: 048
     Dates: start: 20061001, end: 20070201

REACTIONS (1)
  - MYOCARDIAL INFARCTION [None]
